FAERS Safety Report 4570023-0 (Version None)
Quarter: 2005Q1

REPORT INFORMATION
  Report Type: 
  Country: None (occurrence: None)
  Receive Date: 20050125
  Receipt Date: 20050125
  Transmission Date: 20050727
  Serious: Yes (Other)
  Sender: FDA-Public Use
  Company Number: None

PATIENT
  Age: 38 Year
  Sex: Female
  Weight: 53.0709 kg

DRUGS (4)
  1. CEPHALEXIN [Suspect]
     Indication: CELLULITIS
     Dosage: ONE TAB PO BID
     Route: 048
     Dates: start: 20020101, end: 20030101
  2. CEPHALEXIN [Suspect]
     Indication: UPPER RESPIRATORY TRACT INFECTION
     Dosage: ONE TAB PO BID
     Route: 048
     Dates: start: 20020101, end: 20030101
  3. AXERT [Concomitant]
  4. VIVELLE-DOT [Concomitant]

REACTIONS (1)
  - BLISTER [None]
